FAERS Safety Report 24582412 (Version 1)
Quarter: 2024Q4

REPORT INFORMATION
  Report Type: Spontaneous
  Country: US (occurrence: US)
  Receive Date: 20241106
  Receipt Date: 20241106
  Transmission Date: 20250114
  Serious: No
  Sender: MERZ
  Company Number: US-MRZWEB-2024100000158

PATIENT

DRUGS (2)
  1. XEOMIN [Suspect]
     Active Substance: INCOBOTULINUMTOXINA
     Indication: Skin cosmetic procedure
     Dosage: 23 INTERNATIONAL UNIT
     Dates: start: 20240717, end: 20240717
  2. XEOMIN [Suspect]
     Active Substance: INCOBOTULINUMTOXINA
     Indication: Skin wrinkling
     Dosage: 25 INTERNATIONAL UNIT
     Dates: start: 20240823, end: 20240823

REACTIONS (2)
  - Drug ineffective [Recovered/Resolved with Sequelae]
  - Underdose [Unknown]

NARRATIVE: CASE EVENT DATE: 20240101
